FAERS Safety Report 6154232-5 (Version None)
Quarter: 2009Q2

REPORT INFORMATION
  Report Type: 
  Country: None (occurrence: None)
  Receive Date: 20090414
  Receipt Date: 20090406
  Transmission Date: 20091009
  Serious: Yes (Hospitalization)
  Sender: FDA-Public Use
  Company Number: US-AVENTIS-200912889US

PATIENT
  Sex: Female

DRUGS (4)
  1. LANTUS [Suspect]
     Route: 058
     Dates: start: 20090101
  2. APIDRA [Suspect]
     Dosage: DOSE: SLIDING SCALE
     Route: 051
  3. OPTICLIK GREY [Suspect]
  4. CARDIOVASCULAR SYSTEM DRUGS [Concomitant]
     Indication: BLOOD PRESSURE
     Dosage: DOSE: UNK

REACTIONS (1)
  - PULMONARY OEDEMA [None]
